FAERS Safety Report 10170994 (Version 1)
Quarter: 2014Q2

REPORT INFORMATION
  Report Type: Spontaneous
  Country: US (occurrence: None)
  Receive Date: 20140513
  Receipt Date: 20140513
  Transmission Date: 20141212
  Serious: Yes (Death)
  Sender: FDA-Public Use
  Company Number: None

PATIENT
  Age: 73 Year
  Sex: Male

DRUGS (1)
  1. ADCIRCA 20MG ELI LILLY [Suspect]
     Dosage: 13 MONTHS OR LONGER
     Route: 048

REACTIONS (1)
  - Death [None]
